APPROVED DRUG PRODUCT: XOPENEX
Active Ingredient: LEVALBUTEROL HYDROCHLORIDE
Strength: EQ 0.25% BASE **Federal Register determination that product was not discontinued or withdrawn for safety or effectiveness reasons**
Dosage Form/Route: SOLUTION;INHALATION
Application: N020837 | Product #004
Applicant: HIKMA PHARMACEUTICALS USA INC
Approved: Jul 18, 2003 | RLD: Yes | RS: No | Type: DISCN